FAERS Safety Report 23297708 (Version 1)
Quarter: 2023Q4

REPORT INFORMATION
  Report Type: Spontaneous
  Country: FR (occurrence: FR)
  Receive Date: 20231214
  Receipt Date: 20231214
  Transmission Date: 20240110
  Serious: Yes (Hospitalization, Other)
  Sender: FDA-Public Use
  Company Number: FR-BAXTER-2023BAX036695

PATIENT
  Age: 39 Year
  Sex: Male
  Weight: 76 kg

DRUGS (29)
  1. CARBOPLATIN [Suspect]
     Active Substance: CARBOPLATIN
     Indication: Diffuse large B-cell lymphoma stage III
     Dosage: UNK UNK, ONCE A DAY ( 5 AUC, QD)
     Route: 042
     Dates: start: 20231028, end: 20231028
  2. IFOSFAMIDE [Suspect]
     Active Substance: IFOSFAMIDE
     Indication: Diffuse large B-cell lymphoma stage III
     Dosage: 5000 MILLIGRAM/SQ. METER, CYCLE 1 ARM
     Route: 042
     Dates: start: 20231028, end: 20231029
  3. RITUXIMAB [Suspect]
     Active Substance: RITUXIMAB
     Indication: Diffuse large B-cell lymphoma stage III
     Dosage: 375 MILLIGRAM/SQ. METER, CYCLE 1 ARM 10
     Route: 042
     Dates: start: 20231027, end: 20231027
  4. ETOPOSIDE [Suspect]
     Active Substance: ETOPOSIDE
     Indication: Diffuse large B-cell lymphoma stage III
     Dosage: 100 MILLIGRAM/SQ. METER, CYCLE 1 ARM 10
     Route: 042
     Dates: start: 20231027, end: 20231029
  5. EPCORITAMAB [Suspect]
     Active Substance: EPCORITAMAB
     Indication: Diffuse large B-cell lymphoma stage III
     Dosage: 0.16 MILLIGRAM, C1D1, PRIMING DOSE
     Route: 058
     Dates: start: 20231030, end: 20231030
  6. EPCORITAMAB [Suspect]
     Active Substance: EPCORITAMAB
     Dosage: 0.8 MILLIGRAM, INTERMEDIATE DOSE, C1D8
     Route: 058
     Dates: start: 20231106, end: 20231106
  7. EPCORITAMAB [Suspect]
     Active Substance: EPCORITAMAB
     Dosage: 48 MILLIGRAM, FULL DOSE, C1D15. PRIOR TO THE EVENT ONSET
     Route: 058
     Dates: start: 20231113
  8. BACTRIM [Concomitant]
     Active Substance: SULFAMETHOXAZOLE\TRIMETHOPRIM
     Indication: Product used for unknown indication
     Dosage: UNK, ONGOING
     Route: 065
     Dates: start: 20231028
  9. BISOPROLOL [Concomitant]
     Active Substance: BISOPROLOL\BISOPROLOL FUMARATE
     Indication: Product used for unknown indication
     Dosage: UNK, ONGOING
     Route: 065
     Dates: start: 20230218
  10. CICLOPIROX [Concomitant]
     Active Substance: CICLOPIROX\TOCOPHEROL
     Indication: Product used for unknown indication
     Dosage: UNK, ONGOING
     Route: 065
     Dates: start: 20230809
  11. POLARAMINE [Concomitant]
     Active Substance: DEXCHLORPHENIRAMINE MALEATE
     Indication: Product used for unknown indication
     Dosage: 5 MILLIGRAM
     Route: 042
     Dates: start: 20231106, end: 20231113
  12. VALACYCLOVIR HYDROCHLORIDE [Concomitant]
     Active Substance: VALACYCLOVIR HYDROCHLORIDE
     Indication: Product used for unknown indication
     Dosage: UNK, ONGOING
     Route: 065
     Dates: start: 20231028
  13. ACETAMINOPHEN [Concomitant]
     Active Substance: ACETAMINOPHEN
     Indication: Product used for unknown indication
     Dosage: 100 MILLIGRAM
     Route: 042
     Dates: start: 20231106, end: 20231113
  14. ACETAMINOPHEN [Concomitant]
     Active Substance: ACETAMINOPHEN
     Dosage: UNK
     Route: 065
     Dates: start: 20231114, end: 20231115
  15. FOLIC ACID [Concomitant]
     Active Substance: FOLIC ACID
     Indication: Product used for unknown indication
     Dosage: UNK, ONGOING
     Route: 065
     Dates: start: 20231026
  16. AMOROLFINE [Concomitant]
     Active Substance: AMOROLFINE
     Indication: Product used for unknown indication
     Dosage: UNK, ONGOING
     Route: 065
     Dates: start: 20230909
  17. ONDANSETRON [Concomitant]
     Active Substance: ONDANSETRON
     Indication: Product used for unknown indication
     Dosage: UNK
     Route: 065
     Dates: start: 20231027, end: 20231029
  18. LANSOPRAZOLE [Concomitant]
     Active Substance: LANSOPRAZOLE
     Indication: Product used for unknown indication
     Dosage: UNK, ONGOING
     Route: 065
     Dates: start: 20231023
  19. SODIUM BICARBONATE [Concomitant]
     Active Substance: SODIUM BICARBONATE
     Indication: Product used for unknown indication
     Dosage: UNK, ONGOING
     Route: 065
     Dates: start: 20231027
  20. AZITHROMYCIN [Concomitant]
     Active Substance: AZITHROMYCIN
     Indication: Product used for unknown indication
     Dosage: UNK
     Route: 065
     Dates: start: 20231119, end: 20231120
  21. FILGRASTIM [Concomitant]
     Active Substance: FILGRASTIM
     Indication: Product used for unknown indication
     Dosage: UNK
     Route: 065
     Dates: start: 20231101, end: 20231105
  22. ACUPAN [Concomitant]
     Active Substance: NEFOPAM HYDROCHLORIDE
     Indication: Product used for unknown indication
     Dosage: UNK
     Route: 065
     Dates: start: 20231114, end: 20231114
  23. PIPERACILLIN SODIUM\TAZOBACTAM SODIUM [Concomitant]
     Active Substance: PIPERACILLIN SODIUM\TAZOBACTAM SODIUM
     Indication: Product used for unknown indication
     Dosage: UNK
     Route: 065
     Dates: start: 20231120, end: 20231121
  24. SOLU-MEDROL [Concomitant]
     Active Substance: METHYLPREDNISOLONE SODIUM SUCCINATE
     Indication: Product used for unknown indication
     Dosage: UNK
     Route: 065
     Dates: start: 20231027, end: 20231027
  25. METRONIDAZOLE [Concomitant]
     Active Substance: METRONIDAZOLE
     Indication: Product used for unknown indication
     Dosage: UNK
     Route: 065
     Dates: start: 20231119, end: 20231120
  26. PREDNISONE [Concomitant]
     Active Substance: PREDNISONE
     Indication: Product used for unknown indication
     Dosage: 10 MILLIGRAM, ONCE A DAY
     Route: 048
     Dates: start: 20230331, end: 20231102
  27. PREDNISONE [Concomitant]
     Active Substance: PREDNISONE
     Dosage: 60 MILLIGRAM, ONCE A DAY
     Route: 048
     Dates: start: 20231020, end: 20231026
  28. PREDNISONE [Concomitant]
     Active Substance: PREDNISONE
     Dosage: 100 MILLIGRAM, ONCE A DAY
     Route: 042
     Dates: start: 20231030
  29. PREDNISONE [Concomitant]
     Active Substance: PREDNISONE
     Dosage: 80 MILLIGRAM, ONCE A DAY
     Route: 048
     Dates: start: 20231028, end: 20231029

REACTIONS (4)
  - Cytokine release syndrome [Recovered/Resolved]
  - Erythema [Recovered/Resolved]
  - Pyrexia [Not Recovered/Not Resolved]
  - Superficial vein thrombosis [Not Recovered/Not Resolved]

NARRATIVE: CASE EVENT DATE: 20231114
